FAERS Safety Report 5294252-6 (Version None)
Quarter: 2007Q1

REPORT INFORMATION
  Report Type: 
  Country: None (occurrence: None)
  Receive Date: 20070116
  Receipt Date: 20060707
  Transmission Date: 20070707
  Serious: Yes (Other)
  Sender: FDA-Public Use
  Company Number: HQWYE692710JUL06

PATIENT
  Age: 61 Year
  Sex: Female

DRUGS (14)
  1. PREMPRO [Suspect]
     Indication: MENOPAUSE
     Dosage: SEE IMAGE
     Route: 048
     Dates: end: 20050101
  2. PREMPRO [Suspect]
     Indication: MYOCARDIAL INFARCTION
     Dosage: SEE IMAGE
     Route: 048
     Dates: end: 20050101
  3. PREMPRO [Suspect]
     Indication: PROPHYLAXIS
     Dosage: SEE IMAGE
     Route: 048
     Dates: end: 20050101
  4. PREMPRO [Suspect]
     Indication: MENOPAUSE
     Dosage: SEE IMAGE
     Route: 048
     Dates: start: 20050101, end: 20060601
  5. PREMPRO [Suspect]
     Indication: MYOCARDIAL INFARCTION
     Dosage: SEE IMAGE
     Route: 048
     Dates: start: 20050101, end: 20060601
  6. PREMPRO [Suspect]
     Indication: PROPHYLAXIS
     Dosage: SEE IMAGE
     Route: 048
     Dates: start: 20050101, end: 20060601
  7. PREMPRO [Suspect]
     Indication: MENOPAUSE
     Dosage: SEE IMAGE
     Route: 048
     Dates: start: 19930101
  8. PREMPRO [Suspect]
     Indication: MYOCARDIAL INFARCTION
     Dosage: SEE IMAGE
     Route: 048
     Dates: start: 19930101
  9. PREMPRO [Suspect]
     Indication: PROPHYLAXIS
     Dosage: SEE IMAGE
     Route: 048
     Dates: start: 19930101
  10. PREMPRO [Suspect]
     Indication: MENOPAUSE
     Dosage: SEE IMAGE
     Route: 048
     Dates: start: 20060601
  11. PREMPRO [Suspect]
     Indication: MYOCARDIAL INFARCTION
     Dosage: SEE IMAGE
     Route: 048
     Dates: start: 20060601
  12. PREMPRO [Suspect]
     Indication: PROPHYLAXIS
     Dosage: SEE IMAGE
     Route: 048
     Dates: start: 20060601
  13. VYTORIN [Concomitant]
  14. ATENOLOL [Concomitant]

REACTIONS (5)
  - DEPRESSION [None]
  - DRUG EFFECT DECREASED [None]
  - DRUG INEFFECTIVE [None]
  - INSOMNIA [None]
  - MYOCARDIAL INFARCTION [None]
